FAERS Safety Report 9846395 (Version 3)
Quarter: 2014Q1

REPORT INFORMATION
  Report Type: Report from Study
  Country: AU (occurrence: AU)
  Receive Date: 20140127
  Receipt Date: 20140213
  Transmission Date: 20141002
  Serious: Yes (Other)
  Sender: FDA-Public Use
  Company Number: PHHY2014AU007519

PATIENT
  Age: 75 Year
  Sex: Male

DRUGS (11)
  1. CLOZARIL [Suspect]
     Dosage: 7.5 MG, UNK
  2. CLOZARIL [Suspect]
     Dosage: 37.5 MG, DAILY
     Dates: start: 20130520, end: 20140120
  3. DOCUSATE SODIUM\SENNOSIDES [Concomitant]
     Dosage: 2 DF, QHS
  4. ESCITALOPRAM [Concomitant]
     Dosage: 1 DF, QD (MORNING)
  5. FLORINEF [Concomitant]
     Dosage: 1.5 DF, UNK
  6. MADOPAR [Concomitant]
     Dosage: 1 DF, TID
  7. MEGAFOL [Concomitant]
     Dosage: 1 DF, QD (MORNING)
  8. MOTILIUM//DOMPERIDONE [Concomitant]
     Dosage: 1 DF, BID
  9. OSTELIN VITAMIN D [Concomitant]
     Dosage: 1 DF (1000 IU), QD MORNING
  10. PANADOL OSTEO [Concomitant]
     Dosage: 2 DF, TID
     Route: 048
  11. PARIET [Concomitant]
     Dosage: 1 DF, UNK
     Route: 048

REACTIONS (16)
  - Aortic dilatation [Unknown]
  - Aortic aneurysm [Unknown]
  - Right ventricular systolic pressure increased [Unknown]
  - Aortic valve incompetence [Unknown]
  - Ventricular extrasystoles [Unknown]
  - Mitral valve incompetence [Unknown]
  - Paranoia [Unknown]
  - Atrial fibrillation [Unknown]
  - Electrocardiogram abnormal [Unknown]
  - Electrocardiogram QT prolonged [Unknown]
  - Tachycardia [Recovered/Resolved]
  - Arrhythmia [Unknown]
  - Blood pressure increased [Unknown]
  - Heart rate irregular [Unknown]
  - Haemoglobin decreased [Unknown]
  - Drug ineffective [Unknown]
